FAERS Safety Report 6766477-1 (Version None)
Quarter: 2010Q2

REPORT INFORMATION
  Report Type: 
  Country: None (occurrence: None)
  Receive Date: 20100609
  Receipt Date: 20100601
  Transmission Date: 20101027
  Serious: Yes (Hospitalization)
  Sender: FDA-Public Use
  Company Number: 013069

PATIENT
  Sex: Female
  Weight: 73 kg

DRUGS (8)
  1. CERTOLIZUMAB PEGOL     (CERTOLIZUMAB PEGOL) [Suspect]
     Indication: RHEUMATOID ARTHRITIS
     Dosage: 400 MG 1X/2 WEEKS, CDP870-027 SUBCUTANEOUS, (400 MG 1X/2 WEEKS SUBCUTANEOUS)
     Route: 058
     Dates: start: 20050602, end: 20060517
  2. CERTOLIZUMAB PEGOL     (CERTOLIZUMAB PEGOL) [Suspect]
     Indication: RHEUMATOID ARTHRITIS
     Dosage: 400 MG 1X/2 WEEKS, CDP870-027 SUBCUTANEOUS, (400 MG 1X/2 WEEKS SUBCUTANEOUS)
     Route: 058
     Dates: start: 20060531
  3. METHOTREXATE [Concomitant]
  4. FOLIC ACID [Concomitant]
  5. IBALGIN [Concomitant]
  6. OMEPRAZOL AGEN [Concomitant]
  7. CARBIMAZOLE [Concomitant]
  8. BETALOC [Concomitant]

REACTIONS (2)
  - BASAL CELL CARCINOMA [None]
  - HEADACHE [None]
